FAERS Safety Report 7644518-7 (Version None)
Quarter: 2011Q3

REPORT INFORMATION
  Report Type: 
  Country: None (occurrence: None)
  Receive Date: 20110729
  Receipt Date: 20110720
  Transmission Date: 20111222
  Serious: Yes (Hospitalization)
  Sender: FDA-Public Use
  Company Number: US-JNJFOC-20110608155

PATIENT
  Sex: Female
  Weight: 120.2 kg

DRUGS (22)
  1. RISPERDAL CONSTA [Suspect]
     Route: 030
     Dates: start: 20081119
  2. ZOCOR [Concomitant]
     Indication: HYPERCHOLESTEROLAEMIA
  3. RISPERDAL CONSTA [Suspect]
     Route: 030
     Dates: start: 20110408
  4. IBUPROFEN [Concomitant]
     Indication: ARTHRALGIA
  5. METFORMIN HCL [Concomitant]
     Indication: TYPE 2 DIABETES MELLITUS
  6. HALDOL [Concomitant]
     Indication: SCHIZOPHRENIA, PARANOID TYPE
     Dates: start: 20110419
  7. LISINOPRIL [Concomitant]
     Indication: HYPERTENSION
  8. DEPAKOTE [Concomitant]
     Indication: MOOD SWINGS
     Dates: start: 20110513
  9. NALTREXONE HYDROCHLORIDE [Concomitant]
     Indication: ALCOHOL ABUSE
  10. TRAZODONE HCL [Concomitant]
     Indication: INSOMNIA
     Dates: start: 20110513
  11. RISPERDAL CONSTA [Suspect]
     Indication: SCHIZOPHRENIA, PARANOID TYPE
     Route: 030
     Dates: start: 20110601
  12. LUVOX [Concomitant]
     Indication: OBSESSIVE-COMPULSIVE DISORDER
  13. RISPERDAL CONSTA [Suspect]
     Route: 030
     Dates: start: 20080723
  14. HYDROCHLOROTHIAZIDE [Concomitant]
     Indication: HYPERTENSION
  15. VISTARIL [Concomitant]
     Indication: WITHDRAWAL SYNDROME
  16. HALDOL [Concomitant]
     Dates: start: 20110513
  17. COREG [Concomitant]
     Indication: HYPERTENSION
  18. NORVASC [Concomitant]
     Indication: HYPERTENSION
  19. DEPAKOTE [Concomitant]
     Dates: start: 20110419
  20. LANTUS [Concomitant]
     Indication: DIABETES MELLITUS
  21. TYLENOL-500 [Concomitant]
     Indication: ARTHRALGIA
  22. TRAZODONE HCL [Concomitant]
     Dates: start: 20110419

REACTIONS (2)
  - SELF-INJURIOUS IDEATION [None]
  - VIOLENCE-RELATED SYMPTOM [None]
